FAERS Safety Report 8431480-2 (Version None)
Quarter: 2012Q2

REPORT INFORMATION
  Report Type: 
  Country: None (occurrence: None)
  Receive Date: 20120604
  Receipt Date: 20120525
  Transmission Date: 20120825
  Serious: Yes (Hospitalization, Other)
  Sender: FDA-Public Use
  Company Number: 09-AUR-10383

PATIENT
  Age: 70 Year
  Sex: Female

DRUGS (2)
  1. GABAPENTIN [Concomitant]
  2. RISPERIDONE [Suspect]
     Indication: SCHIZOPHRENIA
     Dosage: 1 MG (0.5 MG, 2 IN 1 D), ORAL; 4 MG, 1 D, ORAL
     Route: 048

REACTIONS (9)
  - BLOOD CHOLESTEROL INCREASED [None]
  - MUSCLE TWITCHING [None]
  - HYPERTRIGLYCERIDAEMIA [None]
  - PARANOIA [None]
  - HIGH DENSITY LIPOPROTEIN DECREASED [None]
  - PSYCHOTIC DISORDER [None]
  - TREATMENT NONCOMPLIANCE [None]
  - AGITATION [None]
  - SPEECH DISORDER [None]
